FAERS Safety Report 13525325 (Version 1)
Quarter: 2017Q2

REPORT INFORMATION
  Report Type: Spontaneous
  Country: US (occurrence: US)
  Receive Date: 20170508
  Receipt Date: 20170508
  Transmission Date: 20170830
  Serious: No
  Sender: FDA-Public Use
  Company Number: US-ROCHE-1084790

PATIENT
  Age: 16 Year
  Sex: Female

DRUGS (5)
  1. PROPRANOLOL [Concomitant]
     Active Substance: PROPRANOLOL HYDROCHLORIDE
  2. BEVACIZUMAB [Suspect]
     Active Substance: BEVACIZUMAB
     Indication: ANAPLASTIC ASTROCYTOMA
     Route: 065
  3. VALPROIC ACID. [Concomitant]
     Active Substance: VALPROIC ACID
  4. RIZATRIPTAN. [Concomitant]
     Active Substance: RIZATRIPTAN
  5. ONDANSETRON [Concomitant]
     Active Substance: ONDANSETRON

REACTIONS (1)
  - Tongue geographic [Not Recovered/Not Resolved]
